FAERS Safety Report 11452230 (Version 2)
Quarter: 2015Q3

REPORT INFORMATION
  Report Type: Spontaneous
  Country: GB (occurrence: GB)
  Receive Date: 20150903
  Receipt Date: 20150923
  Transmission Date: 20151125
  Serious: Yes (Other)
  Sender: FDA-Public Use
  Company Number: GB-ASTRAZENECA-2015SE82445

PATIENT
  Age: 42 Year
  Sex: Female
  Weight: 59.4 kg

DRUGS (10)
  1. ZOLADEX [Suspect]
     Active Substance: GOSERELIN ACETATE
     Indication: UTERINE LEIOMYOMA
     Dosage: 1 INJECTION OF LOW DOSE EVERY FOUR WEEKS.
     Route: 058
     Dates: start: 20150107, end: 20150430
  2. CITALOPRAM [Interacting]
     Active Substance: CITALOPRAM HYDROBROMIDE
     Indication: DEPRESSION
     Dates: start: 20150203, end: 20150226
  3. FLUOXETINE [Interacting]
     Active Substance: FLUOXETINE\FLUOXETINE HYDROCHLORIDE
     Indication: DEPRESSION
     Dates: start: 201203, end: 201403
  4. CITALOPRAM [Interacting]
     Active Substance: CITALOPRAM HYDROBROMIDE
     Indication: DEPRESSION
     Dates: start: 20150226, end: 20150305
  5. CITALOPRAM [Interacting]
     Active Substance: CITALOPRAM HYDROBROMIDE
     Indication: DEPRESSION
     Dates: start: 20150203, end: 20150226
  6. CITALOPRAM [Interacting]
     Active Substance: CITALOPRAM HYDROBROMIDE
     Indication: DEPRESSION
     Dates: start: 20150305, end: 20150327
  7. FLUOXETINE [Interacting]
     Active Substance: FLUOXETINE\FLUOXETINE HYDROCHLORIDE
     Indication: DEPRESSION
     Dates: start: 201407, end: 20141003
  8. FLUOXETINE [Interacting]
     Active Substance: FLUOXETINE\FLUOXETINE HYDROCHLORIDE
     Indication: DEPRESSION
     Dates: start: 20150327, end: 20150605
  9. FLUOXETINE [Interacting]
     Active Substance: FLUOXETINE\FLUOXETINE HYDROCHLORIDE
     Indication: DEPRESSION
     Dates: start: 20150605
  10. CITALOPRAM [Interacting]
     Active Substance: CITALOPRAM HYDROBROMIDE
     Indication: DEPRESSION
     Dates: start: 20141003, end: 20150203

REACTIONS (3)
  - Depressive symptom [Recovering/Resolving]
  - Inhibitory drug interaction [Unknown]
  - Suicidal ideation [Unknown]

NARRATIVE: CASE EVENT DATE: 20150108
